FAERS Safety Report 7576531-2 (Version None)
Quarter: 2011Q2

REPORT INFORMATION
  Report Type: 
  Country: None (occurrence: None)
  Receive Date: 20110624
  Receipt Date: 20110624
  Transmission Date: 20111010
  Serious: Yes (Death, Hospitalization)
  Sender: FDA-Public Use
  Company Number: None

PATIENT
  Sex: Female
  Weight: 75.36 kg

DRUGS (3)
  1. CARBOPLATIN [Suspect]
     Dosage: 693 MG
     Dates: end: 20110607
  2. TAXOL [Suspect]
     Dosage: 343 MG
     Dates: end: 20110607
  3. LOVENOX [Concomitant]

REACTIONS (4)
  - ANAEMIA [None]
  - UNRESPONSIVE TO STIMULI [None]
  - DEEP VEIN THROMBOSIS [None]
  - NEUTROPENIA [None]
